FAERS Safety Report 11940093 (Version 1)
Quarter: 2016Q1

REPORT INFORMATION
  Report Type: Spontaneous
  Country: US (occurrence: US)
  Receive Date: 20160122
  Receipt Date: 20160122
  Transmission Date: 20160526
  Serious: No
  Sender: FDA-Public Use
  Company Number: US-BAYER-2016-013081

PATIENT
  Age: 5 Year
  Sex: Female
  Weight: 17.23 kg

DRUGS (1)
  1. CHILDREN CLARITIN ALLERGY [Suspect]
     Active Substance: LORATADINE
     Indication: NASAL CONGESTION
     Dosage: 1 DF, QD
     Route: 048
     Dates: start: 2013

REACTIONS (3)
  - Allergy to chemicals [None]
  - Expired product administered [Unknown]
  - Product use issue [None]

NARRATIVE: CASE EVENT DATE: 2014
